FAERS Safety Report 8951675 (Version 1)
Quarter: 2012Q4

REPORT INFORMATION
  Report Type: 
  Country: FR (occurrence: FR)
  Receive Date: 20121204
  Receipt Date: 20121204
  Transmission Date: 20130627
  Serious: Yes (Other)
  Sender: FDA-Public Use
  Company Number: PHHY2012FR110756

PATIENT
  Age: 3 Year
  Sex: Male

DRUGS (6)
  1. DOXORUBICIN [Suspect]
     Indication: BURKITT^S LYMPHOMA STAGE III
  2. PREDNISOLONE SANDOZ [Suspect]
     Indication: BURKITT^S LYMPHOMA STAGE III
  3. METHOTREXATE [Suspect]
     Indication: BURKITT^S LYMPHOMA STAGE III
  4. CYTARABINE [Suspect]
     Indication: BURKITT^S LYMPHOMA STAGE III
  5. ONCOVIN [Suspect]
     Indication: BURKITT^S LYMPHOMA STAGE III
  6. CYCLOPHOSPHAMIDE [Suspect]
     Indication: BURKITT^S LYMPHOMA STAGE III

REACTIONS (1)
  - Neutropenia [Unknown]
